FAERS Safety Report 14302649 (Version 1)
Quarter: 2017Q4

REPORT INFORMATION
  Report Type: Spontaneous
  Country: US (occurrence: US)
  Receive Date: 20171219
  Receipt Date: 20171219
  Transmission Date: 20180321
  Serious: Yes (Other)
  Sender: FDA-Public Use
  Company Number: None

PATIENT
  Age: 71 Year
  Sex: Male

DRUGS (17)
  1. ATORVASTATIN [Concomitant]
     Active Substance: ATORVASTATIN
  2. SOTALOL. [Concomitant]
     Active Substance: SOTALOL
  3. ZOFRAN [Concomitant]
     Active Substance: ONDANSETRON HYDROCHLORIDE
  4. FUROSEMIDE. [Concomitant]
     Active Substance: FUROSEMIDE
  5. RANEXA [Concomitant]
     Active Substance: RANOLAZINE
  6. LONSURF [Suspect]
     Active Substance: TIPIRACIL HYDROCHLORIDE\TRIFLURIDINE
     Indication: APPENDIX CANCER
     Route: 048
     Dates: start: 20170819
  7. LEVOTHYROXIN [Concomitant]
     Active Substance: LEVOTHYROXINE
  8. LORAZEPAM. [Concomitant]
     Active Substance: LORAZEPAM
  9. VITAMIN D [Concomitant]
     Active Substance: CHOLECALCIFEROL
  10. KLOR-CON [Concomitant]
     Active Substance: POTASSIUM CHLORIDE
  11. OMEGA 3 KRILL [Concomitant]
  12. OMEPRAZOLE. [Concomitant]
     Active Substance: OMEPRAZOLE
  13. COUMADIN [Concomitant]
     Active Substance: WARFARIN SODIUM
  14. METOLAZONE. [Concomitant]
     Active Substance: METOLAZONE
  15. LONSURF [Suspect]
     Active Substance: TIPIRACIL HYDROCHLORIDE\TRIFLURIDINE
     Indication: APPENDIX CANCER
     Route: 048
     Dates: start: 20170412
  16. ASPIRIN. [Concomitant]
     Active Substance: ASPIRIN
  17. IRBESARTAN. [Concomitant]
     Active Substance: IRBESARTAN

REACTIONS (2)
  - Diarrhoea [None]
  - Anaemia [None]

NARRATIVE: CASE EVENT DATE: 20171213
